FAERS Safety Report 8095358-9 (Version None)
Quarter: 2012Q1

REPORT INFORMATION
  Report Type: 
  Country: None (occurrence: None)
  Receive Date: 20120131
  Receipt Date: 20120126
  Transmission Date: 20120608
  Serious: Yes (Death, Other)
  Sender: FDA-Public Use
  Company Number: US-GILEAD-2011-0048274

PATIENT
  Sex: Male

DRUGS (5)
  1. SIMVASTATIN [Concomitant]
  2. LETAIRIS [Suspect]
     Indication: HEPATIC CIRRHOSIS
  3. LETAIRIS [Suspect]
     Indication: LEFT VENTRICULAR DYSFUNCTION
  4. LETAIRIS [Suspect]
     Indication: PULMONARY HYPERTENSION
     Dosage: 10 MG, UNK
     Route: 048
     Dates: start: 20100806, end: 20111213
  5. LETAIRIS [Suspect]
     Indication: CHRONIC OBSTRUCTIVE PULMONARY DISEASE

REACTIONS (2)
  - AMMONIA INCREASED [None]
  - DISEASE PROGRESSION [None]
